FAERS Safety Report 25883181 (Version 1)
Quarter: 2025Q4

REPORT INFORMATION
  Report Type: Spontaneous
  Country: US (occurrence: US)
  Receive Date: 20251006
  Receipt Date: 20251006
  Transmission Date: 20260117
  Serious: Yes (Other)
  Sender: BRISTOL-MYERS SQUIBB COMPANY
  Company Number: US-BRISTOL-MYERS SQUIBB COMPANY-2025-135173

PATIENT
  Sex: Male

DRUGS (3)
  1. COBENFY [Suspect]
     Active Substance: TROSPIUM CHLORIDE\XANOMELINE
     Indication: Schizophrenia
     Dosage: DOSE: 125/30 MG TWICE A DAY
     Dates: start: 2025
  2. NAVANE [Concomitant]
     Active Substance: THIOTHIXENE
     Indication: Schizophrenia
     Dates: start: 2025, end: 2025
  3. NAVANE [Concomitant]
     Active Substance: THIOTHIXENE

REACTIONS (2)
  - Hallucination, auditory [Recovered/Resolved]
  - Inappropriate affect [Unknown]
